FAERS Safety Report 6308357-1 (Version None)
Quarter: 2009Q3

REPORT INFORMATION
  Report Type: 
  Country: None (occurrence: None)
  Receive Date: 20090813
  Receipt Date: 20090804
  Transmission Date: 20100115
  Serious: Yes (Hospitalization)
  Sender: FDA-Public Use
  Company Number: US-JNJFOC-20090801157

PATIENT
  Sex: Male
  Weight: 43.9 kg

DRUGS (7)
  1. REMICADE [Suspect]
     Route: 042
  2. REMICADE [Suspect]
     Route: 042
  3. REMICADE [Suspect]
     Indication: CROHN'S DISEASE
     Route: 042
  4. PREDNISONE [Concomitant]
  5. PREVACID [Concomitant]
  6. MERCAPTOPURINE [Concomitant]
  7. TRIMETHOPRIM + SULFAMETHOXAZOLE [Concomitant]
     Dosage: SATURDAY AND SUNDAY ONLY

REACTIONS (1)
  - CROHN'S DISEASE [None]
